FAERS Safety Report 7690730-0 (Version None)
Quarter: 2011Q3

REPORT INFORMATION
  Report Type: 
  Country: None (occurrence: None)
  Receive Date: 20110818
  Receipt Date: 20110809
  Transmission Date: 20111222
  Serious: Yes (Death)
  Sender: FDA-Public Use
  Company Number: FR-SANOFI-AVENTIS-2011SA050834

PATIENT
  Age: 54 Year
  Sex: Male

DRUGS (18)
  1. TRABECTEDIN [Suspect]
     Indication: LIPOSARCOMA
     Route: 042
     Dates: start: 20110702, end: 20110702
  2. MINERALS NOS [Concomitant]
  3. ESOMEPRAZOLE MAGNESIUM [Suspect]
     Route: 065
  4. SOLUTIONS FOR PARENTERAL NUTRITION [Concomitant]
  5. LEXOMIL [Concomitant]
  6. ATORVASTATIN CALCIUM [Suspect]
     Route: 048
  7. OROCAL [Concomitant]
  8. ONDANSERTRON HYDROCHLORIDE [Concomitant]
     Indication: PREMEDICATION
     Route: 048
     Dates: start: 20110701, end: 20110701
  9. VENOFER [Concomitant]
  10. HEXAQUINE [Concomitant]
  11. KAYEXALATE [Suspect]
     Route: 048
  12. NEORECORMON ^ROCHE^ [Suspect]
     Route: 042
  13. UN-ALFA [Suspect]
     Route: 048
  14. EMLA [Concomitant]
  15. VOGALENE [Concomitant]
  16. DEDROGYL [Concomitant]
  17. ACETAMINOPHEN [Concomitant]
  18. SPAGULAX [Concomitant]

REACTIONS (2)
  - SUDDEN DEATH [None]
  - CHEST PAIN [None]
